FAERS Safety Report 19361072 (Version 5)
Quarter: 2021Q3

REPORT INFORMATION
  Report Type: Spontaneous
  Country: US (occurrence: US)
  Receive Date: 20210601
  Receipt Date: 20210915
  Transmission Date: 20211014
  Serious: No
  Sender: FDA-Public Use
  Company Number: US-SA-2021SA179441

PATIENT
  Age: 12 Year
  Sex: Female

DRUGS (3)
  1. MULTIVITAMINS [VITAMINS NOS] [Concomitant]
     Active Substance: VITAMINS
  2. DUPIXENT [Suspect]
     Active Substance: DUPILUMAB
     Indication: DERMATITIS ATOPIC
     Dosage: 600 MG, 1X
     Route: 058
  3. DUPIXENT [Suspect]
     Active Substance: DUPILUMAB
     Indication: ECZEMA
     Dosage: 300 MG, QOW
     Route: 058

REACTIONS (9)
  - Skin irritation [Unknown]
  - Anxiety [Unknown]
  - Injection site mass [Recovering/Resolving]
  - Rash [Unknown]
  - Sleep disorder [Unknown]
  - Device use error [Unknown]
  - Discomfort [Unknown]
  - Dermatitis atopic [Unknown]
  - Product use issue [Unknown]

NARRATIVE: CASE EVENT DATE: 20210701
